FAERS Safety Report 7823374-8 (Version None)
Quarter: 2011Q4

REPORT INFORMATION
  Report Type: 
  Country: None (occurrence: None)
  Receive Date: 20111014
  Receipt Date: 20111007
  Transmission Date: 20120403
  Serious: Yes (Hospitalization)
  Sender: FDA-Public Use
  Company Number: 124278-1

PATIENT
  Age: 63 Year
  Sex: Male
  Weight: 108 kg

DRUGS (1)
  1. ETOPOSIDE [Suspect]
     Indication: NON-SMALL CELL LUNG CANCER
     Dosage: 50MG/M2 DAYS 1-5, 29-33; 2/28/2011; 4/29/2011 (61

REACTIONS (9)
  - HYPOXIA [None]
  - RADIATION PNEUMONITIS [None]
  - DYSPNOEA [None]
  - FUNGAL INFECTION [None]
  - PNEUMONITIS CHEMICAL [None]
  - BACTERIAL INFECTION [None]
  - VIRAL INFECTION [None]
  - MYCOBACTERIAL INFECTION [None]
  - PYREXIA [None]
